FAERS Safety Report 10283043 (Version 1)
Quarter: 2014Q3

REPORT INFORMATION
  Report Type: Spontaneous
  Country: SE (occurrence: SE)
  Receive Date: 20140708
  Receipt Date: 20140708
  Transmission Date: 20150326
  Serious: Yes (Other)
  Sender: FDA-Public Use
  Company Number: SE-UCBSA-2014004200

PATIENT
  Age: 5 Year
  Sex: Male

DRUGS (1)
  1. KEPPRA [Suspect]
     Active Substance: LEVETIRACETAM
     Indication: EPILEPSY
     Dosage: UNK
     Dates: end: 20140607

REACTIONS (3)
  - Hepatic function abnormal [Unknown]
  - Unresponsive to stimuli [Unknown]
  - Rash [Unknown]

NARRATIVE: CASE EVENT DATE: 201406
